FAERS Safety Report 5505019-5 (Version None)
Quarter: 2007Q4

REPORT INFORMATION
  Report Type: 
  Country: None (occurrence: None)
  Receive Date: 20071031
  Receipt Date: 20071031
  Transmission Date: 20080405
  Serious: Yes (Hospitalization)
  Sender: FDA-Public Use
  Company Number: None

PATIENT
  Age: 58 Year
  Sex: Male
  Weight: 97.5 kg

DRUGS (6)
  1. BYETTA [Suspect]
     Indication: TYPE 2 DIABETES MELLITUS
     Dosage: 10 MCG TWICE DAILY SQ
     Route: 058
  2. ACTOS [Concomitant]
  3. LANTUS [Concomitant]
  4. CRESTOR [Concomitant]
  5. LISINOPRIL AND HYDROCHLOROTHIAZIDE [Concomitant]
  6. ATENOLOL [Concomitant]

REACTIONS (4)
  - CREATININE RENAL CLEARANCE INCREASED [None]
  - ORAL INTAKE REDUCED [None]
  - PANCREATITIS [None]
  - TREATMENT NONCOMPLIANCE [None]
